FAERS Safety Report 13850119 (Version 5)
Quarter: 2018Q1

REPORT INFORMATION
  Report Type: Spontaneous
  Country: US (occurrence: US)
  Receive Date: 20170809
  Receipt Date: 20180201
  Transmission Date: 20180508
  Serious: Yes (Other)
  Sender: FDA-Public Use
  Company Number: US-INCYTE CORPORATION-2017IN006303

PATIENT

DRUGS (1)
  1. JAKAFI [Suspect]
     Active Substance: RUXOLITINIB
     Indication: MYELOFIBROSIS
     Dosage: 20 MG, BID
     Route: 048
     Dates: start: 20170311

REACTIONS (5)
  - Sarcoma [Unknown]
  - Arthralgia [Recovering/Resolving]
  - Ligament rupture [Unknown]
  - Ligament sprain [Unknown]
  - Device dependence [Unknown]

NARRATIVE: CASE EVENT DATE: 2017
